FAERS Safety Report 18015049 (Version 2)
Quarter: 2020Q3

REPORT INFORMATION
  Report Type: Spontaneous
  Country: DE (occurrence: DE)
  Receive Date: 20200713
  Receipt Date: 20200813
  Transmission Date: 20201103
  Serious: Yes (Hospitalization, Other)
  Sender: FDA-Public Use
  Company Number: NVSC2020DE195312

PATIENT
  Sex: Female

DRUGS (7)
  1. METAMIZOLE [Concomitant]
     Active Substance: METAMIZOLE
     Indication: PRODUCT USED FOR UNKNOWN INDICATION
     Dosage: 30 UNK, PRN (DROPS)
     Route: 065
  2. DICLOFENAC [Concomitant]
     Active Substance: DICLOFENAC
     Indication: PRODUCT USED FOR UNKNOWN INDICATION
     Dosage: 75 MG, PRN
     Route: 065
  3. OMEPRAZOLE. [Concomitant]
     Active Substance: OMEPRAZOLE
     Indication: PRODUCT USED FOR UNKNOWN INDICATION
     Dosage: 20 MG, PRN
     Route: 065
  4. FAMPRIDINE [Concomitant]
     Active Substance: DALFAMPRIDINE
     Indication: PRODUCT USED FOR UNKNOWN INDICATION
     Dosage: 10 MG, BID
     Route: 065
  5. IBUPROFEN. [Concomitant]
     Active Substance: IBUPROFEN
     Indication: PRODUCT USED FOR UNKNOWN INDICATION
     Dosage: 800 MG, PRN
     Route: 065
  6. GILENYA [Suspect]
     Active Substance: FINGOLIMOD HYDROCHLORIDE
     Indication: MULTIPLE SCLEROSIS
     Dosage: 0.5 MG, QD
     Route: 065
     Dates: start: 201809, end: 20200707
  7. SATIVEX [Concomitant]
     Active Substance: NABIXIMOLS
     Indication: PRODUCT USED FOR UNKNOWN INDICATION
     Dosage: 2 UNK (2 PUFFS,ONCE DAILY AND PRN, SPRAY)
     Route: 065

REACTIONS (18)
  - Sleep disorder [Unknown]
  - Depression [Unknown]
  - Fatigue [Unknown]
  - Breast cancer metastatic [Recovering/Resolving]
  - Neurogenic bladder [Unknown]
  - Urinary tract infection enterococcal [Unknown]
  - Quadriparesis [Unknown]
  - Pain [Unknown]
  - Mental disorder due to a general medical condition [Unknown]
  - Radiculopathy [Unknown]
  - Intraductal proliferative breast lesion [Unknown]
  - Urge incontinence [Unknown]
  - Paraesthesia [Unknown]
  - Constipation [Unknown]
  - Chronic kidney disease [Unknown]
  - Ataxia [Unknown]
  - Lymphopenia [Unknown]
  - Migraine [Unknown]

NARRATIVE: CASE EVENT DATE: 20190315
